FAERS Safety Report 5910616-9 (Version None)
Quarter: 2008Q4

REPORT INFORMATION
  Report Type: 
  Country: None (occurrence: None)
  Receive Date: 20081007
  Receipt Date: 20081002
  Transmission Date: 20090506
  Serious: Yes (Hospitalization)
  Sender: FDA-Public Use
  Company Number: US-NOVOPROD-277744

PATIENT
  Age: 54 Year
  Sex: Male

DRUGS (1)
  1. NOVOLOG [Suspect]
     Indication: INSULIN-REQUIRING TYPE 2 DIABETES MELLITUS
     Dosage: SLIDING SCALE
     Route: 058

REACTIONS (5)
  - BLOOD GLUCOSE INCREASED [None]
  - DEVICE FAILURE [None]
  - DIZZINESS [None]
  - INFECTION [None]
  - NEPHROLITHIASIS [None]
